FAERS Safety Report 16534064 (Version 1)
Quarter: 2019Q3

REPORT INFORMATION
  Report Type: Spontaneous
  Country: AU (occurrence: AU)
  Receive Date: 20190703
  Receipt Date: 20190703
  Transmission Date: 20191004
  Serious: Yes (Disabling)
  Sender: FDA-Public Use
  Company Number: None

PATIENT
  Age: 45 Year
  Sex: Female
  Weight: 70 kg

DRUGS (5)
  1. AIMOVIG [Suspect]
     Active Substance: ERENUMAB-AOOE
  2. IMIGRAN [Concomitant]
     Active Substance: SUMATRIPTAN SUCCINATE
  3. MULTIVITAMIN [Concomitant]
     Active Substance: VITAMINS
  4. PARACETAMOL [Concomitant]
     Active Substance: ACETAMINOPHEN
  5. NEUROFEN [Concomitant]
     Active Substance: IBUPROFEN

REACTIONS (4)
  - Arthralgia [None]
  - Insomnia [None]
  - Somnambulism [None]
  - Abnormal dreams [None]
